FAERS Safety Report 11806972 (Version 1)
Quarter: 2015Q4

REPORT INFORMATION
  Report Type: Spontaneous
  Country: CA (occurrence: CA)
  Receive Date: 20151207
  Receipt Date: 20151207
  Transmission Date: 20160305
  Serious: Yes (Other)
  Sender: FDA-Public Use
  Company Number: CA-TEVA-616031USA

PATIENT
  Age: 43 Year
  Sex: Female
  Weight: 92 kg

DRUGS (5)
  1. ONDANSETRON [Concomitant]
     Active Substance: ONDANSETRON
  2. IRINOTECAN [Suspect]
     Active Substance: IRINOTECAN
     Indication: RECTAL CANCER
     Route: 065
  3. BENADRYL [Concomitant]
     Active Substance: DIPHENHYDRAMINE HYDROCHLORIDE
  4. DEXAMETHASONE. [Concomitant]
     Active Substance: DEXAMETHASONE
  5. FLUOROURACIL. [Concomitant]
     Active Substance: FLUOROURACIL

REACTIONS (3)
  - Eye pruritus [Recovered/Resolved]
  - Skin disorder [Recovered/Resolved]
  - Urticaria [Recovered/Resolved]
